FAERS Safety Report 11830104 (Version 6)
Quarter: 2016Q4

REPORT INFORMATION
  Report Type: Report from Study
  Country: JP (occurrence: JP)
  Receive Date: 20151214
  Receipt Date: 20161218
  Transmission Date: 20170206
  Serious: Yes (Hospitalization, Other)
  Sender: FDA-Public Use
  Company Number: JP-ROCHE-1675602

PATIENT
  Age: 14 Year
  Sex: Male

DRUGS (41)
  1. PREDNISOLONE. [Suspect]
     Active Substance: PREDNISOLONE
     Route: 048
     Dates: start: 20150411, end: 20150509
  2. INSULIN [Suspect]
     Active Substance: INSULIN NOS
     Indication: PRODUCT USED FOR UNKNOWN INDICATION
     Route: 065
     Dates: start: 20151114, end: 20160202
  3. SEPAMIT-R [Concomitant]
     Active Substance: NIFEDIPINE
     Dosage: 10 TO 40 MG
     Route: 048
     Dates: start: 20151026, end: 20160104
  4. LULLAN [Concomitant]
     Active Substance: PEROSPIRONE HYDROCHLORIDE
     Dosage: 4 TO 8 MG
     Route: 048
     Dates: start: 20151123, end: 20160119
  5. LONGES [Concomitant]
     Active Substance: LISINOPRIL
     Dosage: 5 TO 10 MG
     Route: 048
     Dates: start: 20151201, end: 20160129
  6. ALFAROL [Concomitant]
     Active Substance: ALFACALCIDOL
     Route: 048
     Dates: start: 20151222
  7. RITUXIMAB [Suspect]
     Active Substance: RITUXIMAB
     Indication: NEPHROTIC SYNDROME
     Dosage: AT THE INITIAL INFUSION RATE OF 25 MG/H AND THE MAXIMUM RATE OF 200 MG/H
     Route: 042
     Dates: start: 20150519, end: 20150519
  8. RITUXIMAB [Suspect]
     Active Substance: RITUXIMAB
     Dosage: AT THE INITIAL INFUSION RATE OF 100 MG/H AND THE MAXIMUM RATE OF 200 MG/H.
     Route: 042
     Dates: start: 20151125, end: 20151125
  9. PREDNISOLONE. [Suspect]
     Active Substance: PREDNISOLONE
     Indication: NEPHROTIC SYNDROME
     Route: 048
     Dates: start: 20150330
  10. PREDNISOLONE. [Suspect]
     Active Substance: PREDNISOLONE
     Route: 048
     Dates: start: 20150905, end: 20151005
  11. MYCOPHENOLATE MOFETIL. [Suspect]
     Active Substance: MYCOPHENOLATE MOFETIL
     Indication: NEPHROTIC SYNDROME
     Route: 048
     Dates: start: 20151113, end: 20151117
  12. CALONAL [Concomitant]
     Active Substance: ACETAMINOPHEN
     Indication: PREMEDICATION
     Route: 048
     Dates: start: 20150519, end: 20151125
  13. ATARAX-P [Concomitant]
     Active Substance: HYDROXYZINE HYDROCHLORIDE
     Indication: PREMEDICATION
     Route: 042
     Dates: start: 20151125, end: 20151125
  14. BACTRAMIN [Concomitant]
     Active Substance: SULFAMETHOXAZOLE\TRIMETHOPRIM
     Dosage: 80 TO 160 MG
     Route: 065
     Dates: start: 20151113
  15. ROZEREM [Concomitant]
     Active Substance: RAMELTEON
     Route: 048
     Dates: start: 20151123, end: 20160125
  16. RITUXIMAB [Suspect]
     Active Substance: RITUXIMAB
     Dosage: AT THE INITIAL INFUSION RATE OF 100 MG/H AND THE MAXIMUM RATE OF 200 MG/H
     Route: 042
     Dates: start: 20160210, end: 20160210
  17. MYCOPHENOLATE MOFETIL. [Suspect]
     Active Substance: MYCOPHENOLATE MOFETIL
     Route: 048
     Dates: start: 20151118, end: 20151130
  18. DIAMOX SEQUELS [Concomitant]
     Active Substance: ACETAZOLAMIDE
     Route: 048
     Dates: start: 20151026, end: 20151102
  19. DENOSINE (JAPAN) [Concomitant]
     Active Substance: GANCICLOVIR
     Route: 041
     Dates: start: 20151207, end: 20151221
  20. PREDNISOLONE. [Suspect]
     Active Substance: PREDNISOLONE
     Route: 048
     Dates: start: 20151017
  21. GASTER [Concomitant]
     Active Substance: FAMOTIDINE
     Route: 048
     Dates: start: 20151019, end: 20151026
  22. TAKEPRON [Concomitant]
     Active Substance: LANSOPRAZOLE
     Route: 048
     Dates: start: 20151124, end: 20160224
  23. PAXIL [Concomitant]
     Active Substance: PAROXETINE HYDROCHLORIDE
     Route: 048
     Dates: start: 20151130, end: 20160119
  24. METHYLPREDNISOLONE SODIUM SUCCINATE. [Suspect]
     Active Substance: METHYLPREDNISOLONE SODIUM SUCCINATE
     Route: 042
     Dates: start: 20151118, end: 20151120
  25. CALONAL [Concomitant]
     Active Substance: ACETAMINOPHEN
     Route: 048
     Dates: start: 20160210, end: 20160210
  26. PREDNISOLONE. [Suspect]
     Active Substance: PREDNISOLONE
     Route: 048
     Dates: start: 20151006, end: 20151016
  27. METHYLPREDNISOLONE SODIUM SUCCINATE. [Suspect]
     Active Substance: METHYLPREDNISOLONE SODIUM SUCCINATE
     Indication: NEPHROTIC SYNDROME
     Route: 042
     Dates: start: 20151026, end: 20151028
  28. METHYLPREDNISOLONE SODIUM SUCCINATE. [Suspect]
     Active Substance: METHYLPREDNISOLONE SODIUM SUCCINATE
     Route: 042
     Dates: start: 20151112, end: 20151114
  29. MIZORIBINE [Concomitant]
     Active Substance: MIZORIBINE
     Indication: NEPHROTIC SYNDROME
     Route: 048
     Dates: start: 20140528, end: 201411
  30. DIAMOX SEQUELS [Concomitant]
     Active Substance: ACETAZOLAMIDE
     Route: 048
     Dates: start: 20151103, end: 20151201
  31. VALIXA [Concomitant]
     Active Substance: VALGANCICLOVIR
     Route: 048
     Dates: start: 20151222, end: 20160126
  32. REBAMIPIDE [Concomitant]
     Active Substance: REBAMIPIDE
     Route: 048
     Dates: start: 20151019, end: 20151109
  33. CICLOSPORIN [Suspect]
     Active Substance: CYCLOSPORINE
     Indication: NEPHROTIC SYNDROME
     Route: 048
     Dates: start: 20120804, end: 20150926
  34. CICLOSPORIN [Suspect]
     Active Substance: CYCLOSPORINE
     Route: 048
     Dates: start: 20151104
  35. LISPRO INSULIN [Suspect]
     Active Substance: INSULIN LISPRO
     Indication: DIABETES MELLITUS
     Dosage: 12 TO 17 UNITS
     Route: 058
     Dates: start: 20151201, end: 20160202
  36. MYCOPHENOLATE MOFETIL. [Suspect]
     Active Substance: MYCOPHENOLATE MOFETIL
     Route: 048
     Dates: start: 20151201
  37. POLARAMINE [Concomitant]
     Active Substance: DEXCHLORPHENIRAMINE MALEATE
     Indication: PREMEDICATION
     Route: 048
     Dates: start: 20150519, end: 20151125
  38. POLARAMINE [Concomitant]
     Active Substance: DEXCHLORPHENIRAMINE MALEATE
     Route: 048
     Dates: start: 20160210, end: 20160210
  39. OMEPRAL [Concomitant]
     Active Substance: OMEPRAZOLE
     Dosage: 40 TO 20 MG
     Route: 048
     Dates: start: 20151028, end: 20151124
  40. POTASSIUM L-ASPARTATE [Concomitant]
     Active Substance: POTASSIUM ASPARTATE ANHYDROUS
     Dosage: 900 TO 1800 MG
     Route: 048
     Dates: start: 20151121, end: 20151208
  41. MAGNESIUM OXIDE. [Concomitant]
     Active Substance: MAGNESIUM OXIDE
     Dosage: 1500 TO 500 MG
     Route: 048
     Dates: start: 20151123

REACTIONS (12)
  - Pyrexia [Recovered/Resolved]
  - Insomnia [Recovered/Resolved]
  - Hypomagnesaemia [Recovered/Resolved]
  - Constipation [Recovering/Resolving]
  - Glucose tolerance impaired [Recovered/Resolved]
  - Schizophrenia [Recovered/Resolved]
  - Osteoporosis [Unknown]
  - Hypokalaemia [Recovering/Resolving]
  - Cytomegalovirus infection [Recovered/Resolved]
  - Acute kidney injury [Recovered/Resolved]
  - Orthostatic intolerance [Recovering/Resolving]
  - Encephalopathy [Recovered/Resolved]

NARRATIVE: CASE EVENT DATE: 20151019
